FAERS Safety Report 9410570 (Version 1)
Quarter: 2013Q3

REPORT INFORMATION
  Report Type: Spontaneous
  Country: US (occurrence: US)
  Receive Date: 20130719
  Receipt Date: 20130719
  Transmission Date: 20140515
  Serious: Yes (Other)
  Sender: FDA-Public Use
  Company Number: US-UCBSA-091736

PATIENT
  Sex: 0

DRUGS (3)
  1. VIMPAT [Suspect]
     Dosage: 500 MG
  2. DEPAKOTE [Concomitant]
     Dosage: ER
  3. DEPAKOTE [Concomitant]
     Dosage: 2000 MG, ER

REACTIONS (3)
  - Convulsion [Unknown]
  - Grand mal convulsion [Unknown]
  - Weight increased [Recovered/Resolved]
